FAERS Safety Report 22929524 (Version 2)
Quarter: 2023Q4

REPORT INFORMATION
  Report Type: Spontaneous
  Country: US (occurrence: US)
  Receive Date: 20230911
  Receipt Date: 20231018
  Transmission Date: 20240110
  Serious: No
  Sender: FDA-Public Use
  Company Number: US-BIOGEN-2021BI01032985

PATIENT
  Sex: Female

DRUGS (8)
  1. VUMERITY [Suspect]
     Active Substance: DIROXIMEL FUMARATE
     Indication: Multiple sclerosis
     Dosage: 1 CAPSULE [231MG] EVERY DAY FOR 2 WEEKS
     Route: 050
     Dates: start: 20210719
  2. VUMERITY [Suspect]
     Active Substance: DIROXIMEL FUMARATE
     Dosage: 1 CAPSULE [231MG] TWICE A DAY FOR 2 WEEKS
     Route: 050
     Dates: start: 20210802
  3. VUMERITY [Suspect]
     Active Substance: DIROXIMEL FUMARATE
     Dosage: 231MG CAPSULE IN THE MORNING AND 2 CAPSULES [462MG TOTAL] AT NIGHT FOR 2 WEEKS
     Route: 050
     Dates: start: 20210816, end: 20210911
  4. VUMERITY [Suspect]
     Active Substance: DIROXIMEL FUMARATE
     Dosage: 2 CAPSULE (462 MG TOTAL) 2 TIMES A DAY
     Route: 050
     Dates: start: 20210916
  5. VUMERITY [Suspect]
     Active Substance: DIROXIMEL FUMARATE
     Dosage: 231MG CAPSULE IN THE MORNING AND 2 CAPSULES [462MG TOTAL] AT NIGHT FOR 2 WEEKS
     Route: 050
     Dates: start: 20210913
  6. VUMERITY [Suspect]
     Active Substance: DIROXIMEL FUMARATE
     Dosage: MAINTENANCE DOSE
     Route: 050
     Dates: start: 20210709
  7. VUMERITY [Suspect]
     Active Substance: DIROXIMEL FUMARATE
     Route: 050
     Dates: start: 20231003, end: 20231009
  8. VUMERITY [Suspect]
     Active Substance: DIROXIMEL FUMARATE
     Route: 050
     Dates: start: 20231010

REACTIONS (25)
  - Intentional product misuse [Unknown]
  - Product dose omission in error [Unknown]
  - Prescribed underdose [Recovered/Resolved]
  - Product dose omission issue [Recovered/Resolved with Sequelae]
  - Bronchitis [Not Recovered/Not Resolved]
  - Hypoaesthesia [Unknown]
  - Abdominal discomfort [Unknown]
  - Blood iron increased [Unknown]
  - Choking sensation [Unknown]
  - Odynophagia [Unknown]
  - Vertigo [Unknown]
  - Fatigue [Unknown]
  - Balance disorder [Unknown]
  - Stress [Unknown]
  - Malaise [Unknown]
  - Coronavirus infection [Unknown]
  - Hyperhidrosis [Recovered/Resolved]
  - Band sensation [Recovered/Resolved]
  - Metamorphopsia [Recovered/Resolved]
  - Oral discomfort [Recovered/Resolved]
  - Paraesthesia [Recovered/Resolved]
  - Diarrhoea [Unknown]
  - Flushing [Unknown]
  - Feeling hot [Recovered/Resolved]
  - Hot flush [Recovered/Resolved]

NARRATIVE: CASE EVENT DATE: 20210101
